FAERS Safety Report 20814653 (Version 3)
Quarter: 2023Q1

REPORT INFORMATION
  Report Type: Spontaneous
  Country: PL (occurrence: PL)
  Receive Date: 20220511
  Receipt Date: 20230307
  Transmission Date: 20230418
  Serious: Yes (Other)
  Sender: FDA-Public Use
  Company Number: PL-ROCHE-3085300

PATIENT
  Age: 56 Year
  Sex: Female

DRUGS (3)
  1. TRASTUZUMAB [Suspect]
     Active Substance: TRASTUZUMAB
     Indication: Breast cancer metastatic
     Dosage: 15 CYCLES
     Route: 042
  2. TRASTUZUMAB [Suspect]
     Active Substance: TRASTUZUMAB
     Dosage: 516 MG, EVERY 3 WEEKS (15TH CYCLE)
     Route: 042
     Dates: start: 20220311
  3. TRASTUZUMAB [Suspect]
     Active Substance: TRASTUZUMAB
     Dosage: 6 MG/KG, EVERY 3 WEEKS (16TH CYCLE)
     Route: 042
     Dates: start: 20220404

REACTIONS (1)
  - Neoplasm progression [Unknown]
